FAERS Safety Report 8565250-1 (Version None)
Quarter: 2012Q3

REPORT INFORMATION
  Report Type: 
  Country: None (occurrence: None)
  Receive Date: 20120803
  Receipt Date: 20120725
  Transmission Date: 20120928
  Serious: Yes (Other)
  Sender: FDA-Public Use
  Company Number: RU-VIIV HEALTHCARE LIMITED-B0819097A

PATIENT
  Sex: Female
  Weight: 42 kg

DRUGS (5)
  1. FLUCONAZOLE [Concomitant]
     Indication: PRODUCT USED FOR UNKNOWN INDICATION
     Route: 065
  2. ABACAVIR [Suspect]
     Indication: HIV INFECTION
     Route: 048
     Dates: start: 20120524, end: 20120625
  3. SULFAMETHOXAZOLE AND TRIMETHOPRIM [Concomitant]
     Indication: PRODUCT USED FOR UNKNOWN INDICATION
     Route: 065
  4. EFAVIRENZ [Concomitant]
     Indication: HIV INFECTION
     Dates: start: 20120524
  5. EPIVIR [Concomitant]
     Indication: HIV INFECTION
     Dates: start: 20120524

REACTIONS (5)
  - DIARRHOEA [None]
  - NAUSEA [None]
  - VOMITING [None]
  - DYSGEUSIA [None]
  - PYREXIA [None]
